FAERS Safety Report 5450129-4 (Version None)
Quarter: 2007Q3

REPORT INFORMATION
  Report Type: 
  Country: None (occurrence: None)
  Receive Date: 20070912
  Receipt Date: 20070906
  Transmission Date: 20080115
  Serious: Yes (Death)
  Sender: FDA-Public Use
  Company Number: A0680514A

PATIENT
  Age: 61 Year
  Sex: Male
  Weight: 62 kg

DRUGS (4)
  1. SERETIDE [Suspect]
     Indication: CHRONIC OBSTRUCTIVE PULMONARY DISEASE
     Dosage: 1PUFF TWICE PER DAY
     Dates: start: 20061001, end: 20070101
  2. RANITIDINE [Concomitant]
     Dosage: 1TAB TWICE PER DAY
     Dates: start: 20061001, end: 20070101
  3. CODEINE SUL TAB [Concomitant]
     Dosage: 1TAB FOUR TIMES PER DAY
     Dates: start: 20061001, end: 20070101
  4. FUROSEMIDE [Concomitant]
     Dosage: 1TAB PER DAY
     Dates: start: 20061001, end: 20070101

REACTIONS (1)
  - RESPIRATORY FAILURE [None]
